FAERS Safety Report 9740922 (Version 1)
Quarter: 2013Q4

REPORT INFORMATION
  Report Type: Spontaneous
  Country: US (occurrence: US)
  Receive Date: 20131209
  Receipt Date: 20131209
  Transmission Date: 20140711
  Serious: No
  Sender: FDA-Public Use
  Company Number: US-BIOGENIDEC-2013BI099660

PATIENT
  Age: 42 Year
  Sex: Female
  Weight: 54 kg

DRUGS (9)
  1. TECFIDERA [Suspect]
     Indication: PRODUCT USED FOR UNKNOWN INDICATION
     Route: 048
  2. TECFIDERA [Suspect]
     Indication: PRODUCT USED FOR UNKNOWN INDICATION
     Route: 048
     Dates: start: 20131001
  3. MUCINEX [Concomitant]
  4. PEPTO-BISMOL [Concomitant]
  5. VITAMIN D [Concomitant]
  6. PRILOSEC [Concomitant]
  7. FISH OIL [Concomitant]
  8. TYLENOL [Concomitant]
  9. ASPIRIN LOW [Concomitant]

REACTIONS (7)
  - Nausea [Recovered/Resolved]
  - Vomiting [Recovered/Resolved]
  - Pruritus [Recovered/Resolved]
  - Flushing [Recovered/Resolved]
  - Burning sensation [Recovered/Resolved]
  - Liver function test abnormal [Not Recovered/Not Resolved]
  - Helicobacter infection [Not Recovered/Not Resolved]
